FAERS Safety Report 19734483 (Version 1)
Quarter: 2021Q3

REPORT INFORMATION
  Report Type: Spontaneous
  Country: RU (occurrence: RU)
  Receive Date: 20210823
  Receipt Date: 20210823
  Transmission Date: 20211014
  Serious: Yes (Death)
  Sender: FDA-Public Use
  Company Number: RU-ASTRAZENECA-2021A691641

PATIENT
  Sex: Male

DRUGS (2)
  1. FORXIGA [Suspect]
     Active Substance: DAPAGLIFLOZIN
     Indication: CARDIAC FAILURE CHRONIC
     Dosage: UNKNOWN
     Route: 048
  2. FIXED COMBINATION FOR THINNING THE BLOOD [Concomitant]

REACTIONS (2)
  - Off label use [Unknown]
  - Cardiac arrest [Fatal]
